FAERS Safety Report 25402353 (Version 1)
Quarter: 2025Q2

REPORT INFORMATION
  Report Type: Spontaneous
  Country: TR (occurrence: TR)
  Receive Date: 20250605
  Receipt Date: 20250605
  Transmission Date: 20250717
  Serious: Yes (Death, Other)
  Sender: JOHNSON AND JOHNSON
  Company Number: TR-JNJFOC-20250604029

PATIENT
  Age: 42 Year
  Sex: Female

DRUGS (1)
  1. TRABECTEDIN [Suspect]
     Active Substance: TRABECTEDIN
     Indication: Ovarian cancer
     Route: 065

REACTIONS (4)
  - Cardiogenic shock [Fatal]
  - Myocarditis [Unknown]
  - Pancytopenia [Unknown]
  - Abdominal pain [Not Recovered/Not Resolved]
